FAERS Safety Report 17281570 (Version 1)
Quarter: 2020Q1

REPORT INFORMATION
  Report Type: Spontaneous
  Country: US (occurrence: US)
  Receive Date: 20191227
  Receipt Date: 20191227
  Transmission Date: 20200409
  Serious: No
  Sender: FDA-Public Use
  Company Number: None

PATIENT
  Age: 64 Year
  Sex: Female

DRUGS (1)
  1. SPRYCEL [Suspect]
     Active Substance: DASATINIB
     Dosage: ?          OTHER DOSE:3 TABLETS;?
     Route: 048
     Dates: start: 2017

REACTIONS (5)
  - Pneumonia [None]
  - Labyrinthitis [None]
  - Pyrexia [None]
  - Sinusitis [None]
  - Therapy cessation [None]

NARRATIVE: CASE EVENT DATE: 20191227
